FAERS Safety Report 9333345 (Version 4)
Quarter: 2016Q4

REPORT INFORMATION
  Report Type: Report from Study
  Country: RU (occurrence: RU)
  Receive Date: 20130606
  Receipt Date: 20161123
  Transmission Date: 20170207
  Serious: Yes (Death, Hospitalization)
  Sender: FDA-Public Use
  Company Number: RU-PFIZER INC-2013168436

PATIENT
  Age: 72 Year
  Sex: Male

DRUGS (17)
  1. SUNITINIB MALATE. [Suspect]
     Active Substance: SUNITINIB MALATE
     Dosage: 50 MG, CYCLIC (1X/DAY, 4 WEEKS ON/2 WEEKS OFF)
     Route: 048
     Dates: start: 20120724, end: 20120820
  2. SUNITINIB MALATE. [Suspect]
     Active Substance: SUNITINIB MALATE
     Dosage: 50 MG, CYCLIC (1X/DAY, 4 WEEKS ON/2 WEEKS OFF)
     Route: 048
     Dates: start: 20130402, end: 20130429
  3. SUNITINIB MALATE. [Suspect]
     Active Substance: SUNITINIB MALATE
     Dosage: 50 MG, CYCLIC (1X/DAY, 4 WEEKS ON/2 WEEKS OFF)
     Route: 048
     Dates: start: 20120904, end: 20121001
  4. SUNITINIB MALATE. [Suspect]
     Active Substance: SUNITINIB MALATE
     Dosage: 50 MG, CYCLIC (1X/DAY, 4 WEEKS ON/2 WEEKS OFF)
     Route: 048
     Dates: start: 20121016, end: 20121112
  5. GRANULOCYTE MACROPHAGE COLONY STIM FACTOR [Suspect]
     Active Substance: GRANULOCYTE-MACROPHAGE COLONY-STIMULATING FACTOR
     Indication: METASTATIC RENAL CELL CARCINOMA
     Dosage: 75 UG, UNK
     Route: 041
     Dates: start: 20120314, end: 20120628
  6. SUNITINIB MALATE. [Suspect]
     Active Substance: SUNITINIB MALATE
     Dosage: 50 MG, CYCLIC (1X/DAY, 4 WEEKS ON/2 WEEKS OFF)
     Route: 048
     Dates: start: 20130219, end: 20130318
  7. ENALAPRIL [Concomitant]
     Active Substance: ENALAPRIL
     Indication: HYPERTENSION
     Dosage: UNK
     Dates: start: 201202
  8. SUNITINIB MALATE. [Suspect]
     Active Substance: SUNITINIB MALATE
     Dosage: 50 MG, CYCLIC (1X/DAY, 4 WEEKS ON/2 WEEKS OFF)
     Route: 048
     Dates: start: 20130514, end: 20130525
  9. CYCLOPHOSPHAMIDE. [Suspect]
     Active Substance: CYCLOPHOSPHAMIDE
     Indication: METASTATIC RENAL CELL CARCINOMA
     Dosage: 300 MG/M2, CONTINUOUS INFUSION SOLUTION, 1X/DAY
     Route: 042
     Dates: start: 20120311, end: 20120311
  10. AMLODIPINE [Concomitant]
     Active Substance: AMLODIPINE BESYLATE
     Indication: HYPERTENSION
     Dosage: UNK
     Dates: start: 201202
  11. SUNITINIB MALATE. [Suspect]
     Active Substance: SUNITINIB MALATE
     Indication: METASTATIC RENAL CELL CARCINOMA
     Dosage: 50 MG, CYCLIC (1X/DAY, 4 WEEKS ON/2 WEEKS OFF)
     Route: 048
     Dates: start: 20120207, end: 20120305
  12. SUNITINIB MALATE. [Suspect]
     Active Substance: SUNITINIB MALATE
     Dosage: 50 MG, CYCLIC (1X/DAY, 4 WEEKS ON/2 WEEKS OFF)
     Route: 048
     Dates: start: 20130108, end: 20130204
  13. IMA901 [Suspect]
     Active Substance: INVESTIGATIONAL PRODUCT
     Indication: METASTATIC RENAL CELL CARCINOMA
     Dosage: 4.13 MG, UNK
     Route: 041
     Dates: start: 20120314, end: 20120628
  14. SUNITINIB MALATE. [Suspect]
     Active Substance: SUNITINIB MALATE
     Dosage: 50 MG, CYCLIC (1X/DAY, 4 WEEKS ON/2 WEEKS OFF)
     Route: 048
     Dates: start: 20120320, end: 20120416
  15. SUNITINIB MALATE. [Suspect]
     Active Substance: SUNITINIB MALATE
     Dosage: 50 MG, CYCLIC (1X/DAY, 4 WEEKS ON/2 WEEKS OFF)
     Route: 048
     Dates: start: 20120501, end: 20120528
  16. SUNITINIB MALATE. [Suspect]
     Active Substance: SUNITINIB MALATE
     Dosage: 50 MG, CYCLIC (1X/DAY, 4 WEEKS ON/2 WEEKS OFF)
     Route: 048
     Dates: start: 20120612, end: 20120709
  17. SUNITINIB MALATE. [Suspect]
     Active Substance: SUNITINIB MALATE
     Dosage: 50 MG, CYCLIC (1X/DAY, 4 WEEKS ON/2 WEEKS OFF)
     Route: 048
     Dates: start: 20121127, end: 20121224

REACTIONS (1)
  - Oesophageal varices haemorrhage [Fatal]

NARRATIVE: CASE EVENT DATE: 20130524
